FAERS Safety Report 8914622 (Version 2)
Quarter: 2012Q4

REPORT INFORMATION
  Report Type: 
  Country: US (occurrence: US)
  Receive Date: 20121119
  Receipt Date: 20121212
  Transmission Date: 20130627
  Serious: Yes (Death, Other)
  Sender: FDA-Public Use
  Company Number: US-PURDUE-USA-2012-0095802

PATIENT
  Age: 27 Year
  Sex: Male
  Weight: 123 kg

DRUGS (2)
  1. OXYCONTIN (NDA 22-272) [Suspect]
     Indication: PRODUCT USED FOR UNKNOWN INDICATION
  2. BENZODIAZEPINE DERIVATIVES [Suspect]
     Indication: PRODUCT USED FOR UNKNOWN INDICATION

REACTIONS (12)
  - Death [Fatal]
  - Drug abuse [Unknown]
  - Dysstasia [Unknown]
  - Influenza B virus test positive [Unknown]
  - Oropharyngeal pain [Unknown]
  - Muscle strain [Unknown]
  - Sinusitis [Unknown]
  - Leukocytosis [Unknown]
  - Muscle spasms [Unknown]
  - Cough [Unknown]
  - Dysarthria [Unknown]
  - Malaise [Unknown]
